FAERS Safety Report 24215374 (Version 1)
Quarter: 2024Q3

REPORT INFORMATION
  Report Type: Spontaneous
  Country: US (occurrence: US)
  Receive Date: 20240816
  Receipt Date: 20240816
  Transmission Date: 20241017
  Serious: No
  Sender: STRIDES
  Company Number: US-STRIDES ARCOLAB LIMITED-2024SP008535

PATIENT
  Age: 70 Year
  Sex: Female
  Weight: 67.12 kg

DRUGS (6)
  1. CYCLOSPORINE [Suspect]
     Active Substance: CYCLOSPORINE
     Indication: Aplasia pure red cell
     Dosage: 50 MILLIGRAM, OD (THREE OF THE CYCLOSPORINE 50MG ONCE DAILY FOR A YEAR)
     Route: 065
     Dates: start: 2023, end: 202404
  2. CYCLOSPORINE [Suspect]
     Active Substance: CYCLOSPORINE
     Dosage: 50 MILLIGRAM, EVERY MORNING ( TAKES TOTAL 125MG CAPSULES IN A DAY)
     Route: 065
     Dates: start: 202404
  3. CYCLOSPORINE [Suspect]
     Active Substance: CYCLOSPORINE
     Dosage: 50 MILLIGRAM, AT BED TIME ( TAKES TOTAL 125MG CAPSULES IN A DAY)
     Route: 065
     Dates: start: 202404
  4. CYCLOSPORINE [Suspect]
     Active Substance: CYCLOSPORINE
     Dosage: 25 MILLIGRAM, AT BED TIME ( TAKES TOTAL 125MG CAPSULES IN A DAY)
     Route: 065
     Dates: start: 202404
  5. PROPANOL (PROPRANOLOL HYDROCHLORIDE) [Concomitant]
     Active Substance: PROPRANOLOL HYDROCHLORIDE
     Indication: Blood pressure measurement
     Dosage: UNK
     Route: 065
  6. VALSARTAN [Concomitant]
     Active Substance: VALSARTAN
     Indication: Blood pressure measurement
     Dosage: UNK
     Route: 065

REACTIONS (5)
  - Pain in extremity [Not Recovered/Not Resolved]
  - Gait disturbance [Not Recovered/Not Resolved]
  - Arthralgia [Not Recovered/Not Resolved]
  - Pain [Not Recovered/Not Resolved]
  - Off label use [Unknown]

NARRATIVE: CASE EVENT DATE: 20230101
